FAERS Safety Report 21423837 (Version 1)
Quarter: 2022Q4

REPORT INFORMATION
  Report Type: Spontaneous
  Country: US (occurrence: None)
  Receive Date: 20221006
  Receipt Date: 20221006
  Transmission Date: 20230113
  Serious: No
  Sender: FDA-Public Use
  Company Number: None

PATIENT
  Age: 82 Year
  Sex: Female
  Weight: 72.57 kg

DRUGS (3)
  1. HUMIRA [Suspect]
     Active Substance: ADALIMUMAB
     Indication: Psoriasis
     Dosage: INJECT 40MG SUBCUTANEOUSLY EVERY 2 WEEKS AS DIRECTED.     ??DATE OF USE: ON HOLD?
     Route: 058
     Dates: start: 201907
  2. HUMIRA [Suspect]
     Active Substance: ADALIMUMAB
     Indication: Neurodermatitis
  3. HUMIRA [Suspect]
     Active Substance: ADALIMUMAB
     Indication: Dermatitis

REACTIONS (2)
  - Nasopharyngitis [None]
  - Therapy interrupted [None]
